FAERS Safety Report 9284186 (Version 3)
Quarter: 2014Q3

REPORT INFORMATION
  Report Type: Spontaneous
  Country: US (occurrence: US)
  Receive Date: 20130510
  Receipt Date: 20140801
  Transmission Date: 20150326
  Serious: Yes (Hospitalization, Other)
  Sender: FDA-Public Use
  Company Number: US-009507513-1305USA005491

PATIENT
  Sex: Female

DRUGS (1)
  1. NUVARING [Suspect]
     Active Substance: ETHINYL ESTRADIOL\ETONOGESTREL
     Indication: CONTRACEPTION
     Dosage: UNK
     Route: 067
     Dates: start: 20100728, end: 20120723

REACTIONS (11)
  - Hypoaesthesia [Unknown]
  - Chest discomfort [Unknown]
  - Candida infection [Unknown]
  - Pulmonary embolism [Unknown]
  - Cholecystectomy [Unknown]
  - Intra-uterine contraceptive device insertion [Unknown]
  - Irritable bowel syndrome [Unknown]
  - Anxiety [Unknown]
  - Dyspnoea [Unknown]
  - Paraesthesia [Unknown]
  - Alopecia [Unknown]

NARRATIVE: CASE EVENT DATE: 2011
